FAERS Safety Report 16462232 (Version 2)
Quarter: 2019Q2

REPORT INFORMATION
  Report Type: Spontaneous
  Country: JP (occurrence: JP)
  Receive Date: 20190621
  Receipt Date: 20190623
  Transmission Date: 20190711
  Serious: Yes (Hospitalization, Other)
  Sender: FDA-Public Use
  Company Number: PHHY2019JP098899

PATIENT
  Age: 81 Year

DRUGS (1)
  1. RIVASTACH [Suspect]
     Active Substance: RIVASTIGMINE
     Indication: PRODUCT USED FOR UNKNOWN INDICATION
     Dosage: A HALF OF 4.5 MG
     Route: 062

REACTIONS (2)
  - Wrong technique in product usage process [Unknown]
  - Pneumonia aspiration [Unknown]
